FAERS Safety Report 17944939 (Version 2)
Quarter: 2020Q3

REPORT INFORMATION
  Report Type: Spontaneous
  Country: US (occurrence: US)
  Receive Date: 20200625
  Receipt Date: 20200731
  Transmission Date: 20201103
  Serious: No
  Sender: FDA-Public Use
  Company Number: US-BIOGEN-2020BI00881779

PATIENT
  Age: 58 Year
  Sex: Female

DRUGS (4)
  1. TECFIDERA [Suspect]
     Active Substance: DIMETHYL FUMARATE
     Dosage: X 23 DAYS AFTER 120MG DOSE
     Route: 048
     Dates: start: 202006
  2. TECFIDERA [Suspect]
     Active Substance: DIMETHYL FUMARATE
     Route: 048
     Dates: start: 20200526
  3. TECFIDERA [Suspect]
     Active Substance: DIMETHYL FUMARATE
     Indication: MULTIPLE SCLEROSIS
     Route: 048
     Dates: start: 20200529
  4. TECFIDERA [Suspect]
     Active Substance: DIMETHYL FUMARATE
     Dosage: X 7 DAYS
     Route: 048
     Dates: start: 202006

REACTIONS (7)
  - Hypoaesthesia oral [Unknown]
  - Paraesthesia [Unknown]
  - Hot flush [Unknown]
  - Flushing [Unknown]
  - Hypoaesthesia [Unknown]
  - Panic reaction [Unknown]
  - Discomfort [Not Recovered/Not Resolved]

NARRATIVE: CASE EVENT DATE: 20200529
